FAERS Safety Report 6691965-6 (Version None)
Quarter: 2010Q2

REPORT INFORMATION
  Report Type: 
  Country: None (occurrence: None)
  Receive Date: 20100422
  Receipt Date: 20100419
  Transmission Date: 20101027
  Serious: Yes (Death, Hospitalization, Other)
  Sender: FDA-Public Use
  Company Number: PHHY2009CA44661

PATIENT
  Sex: Male
  Weight: 63.492 kg

DRUGS (2)
  1. EXELON [Suspect]
     Indication: DEMENTIA ALZHEIMER'S TYPE
     Dosage: 10 CM2
     Route: 062
     Dates: start: 20090120
  2. EXELON [Suspect]
     Dosage: 5 CM2
     Route: 062
     Dates: end: 20090503

REACTIONS (3)
  - DEATH [None]
  - FALL [None]
  - MENTAL DISORDER [None]
